FAERS Safety Report 8355221-2 (Version None)
Quarter: 2012Q2

REPORT INFORMATION
  Report Type: 
  Country: None (occurrence: None)
  Receive Date: 20120511
  Receipt Date: 20120430
  Transmission Date: 20120825
  Serious: Yes (Other)
  Sender: FDA-Public Use
  Company Number: US-ELI_LILLY_AND_COMPANY-US201111003404

PATIENT
  Sex: Female

DRUGS (11)
  1. FORTEO [Suspect]
     Dosage: 20 UG, QD
     Route: 058
  2. CARDIZEM [Concomitant]
     Dosage: 160 MG, QD
  3. ATIVAN [Concomitant]
  4. FORTEO [Suspect]
     Dosage: 20 UG, QD
     Route: 058
  5. FORTEO [Suspect]
     Dosage: 20 UG, QD
     Route: 058
  6. FORTEO [Suspect]
     Dosage: 20 UG, QD
     Route: 058
  7. CALCIUM [Concomitant]
     Dosage: UNK, QD
  8. EXTRA STRENGTH TYLENOL [Concomitant]
     Dosage: UNK, QD
  9. VITAMIN D [Concomitant]
     Dosage: UNK, QD
  10. ATENOLOL [Concomitant]
     Dosage: 50 MG, QD
  11. FORTEO [Suspect]
     Indication: OSTEOPOROSIS
     Dosage: 20 UG, QD
     Route: 058
     Dates: start: 20110803

REACTIONS (13)
  - OEDEMA PERIPHERAL [None]
  - SKIN DISORDER [None]
  - ARTHRALGIA [None]
  - TRANSIENT ISCHAEMIC ATTACK [None]
  - ARTHRITIS [None]
  - HYPOKINESIA [None]
  - DYSPEPSIA [None]
  - JOINT SWELLING [None]
  - INJECTION SITE PRURITUS [None]
  - PAIN [None]
  - ACTIVITIES OF DAILY LIVING IMPAIRED [None]
  - MUSCULOSKELETAL DISCOMFORT [None]
  - HYPOACUSIS [None]
